FAERS Safety Report 21871869 (Version 1)
Quarter: 2023Q1

REPORT INFORMATION
  Report Type: Spontaneous
  Country: US (occurrence: None)
  Receive Date: 20230114
  Receipt Date: 20230114
  Transmission Date: 20230417
  Serious: Yes (Other)
  Sender: FDA-Public Use
  Company Number: None

PATIENT
  Age: 64 Year
  Sex: Female
  Weight: 69.3 kg

DRUGS (1)
  1. MOXIFLOXACIN [Suspect]
     Active Substance: MOXIFLOXACIN
     Indication: Corneal abrasion
     Dosage: FREQUENCY : EVERY 6 HOURS;?
     Route: 047
     Dates: start: 20221216, end: 20221216

REACTIONS (14)
  - Eye irritation [None]
  - Abdominal pain upper [None]
  - Asthenia [None]
  - Gait disturbance [None]
  - Crying [None]
  - Paraesthesia [None]
  - Muscular weakness [None]
  - Neck pain [None]
  - Back pain [None]
  - Palpitations [None]
  - Chest pain [None]
  - Blood pressure fluctuation [None]
  - Blood glucose increased [None]
  - Adverse drug reaction [None]

NARRATIVE: CASE EVENT DATE: 20221222
